FAERS Safety Report 21927654 (Version 1)
Quarter: 2023Q1

REPORT INFORMATION
  Report Type: Spontaneous
  Country: DE (occurrence: DE)
  Receive Date: 20230130
  Receipt Date: 20230130
  Transmission Date: 20230418
  Serious: Yes (Other)
  Sender: FDA-Public Use
  Company Number: DE-002147023-NVSC2021DE124946

PATIENT
  Age: 83 Year
  Sex: Male

DRUGS (9)
  1. XOLAIR [Suspect]
     Active Substance: OMALIZUMAB
     Indication: Chronic spontaneous urticaria
     Dosage: UNK, QMO (3 X 150)
     Route: 065
     Dates: start: 202011
  2. XOLAIR [Suspect]
     Active Substance: OMALIZUMAB
     Indication: Asthma
     Dosage: UNK (SECOND APPLICATION)
     Route: 065
     Dates: start: 202102
  3. XOLAIR [Suspect]
     Active Substance: OMALIZUMAB
     Indication: Angioedema
     Dosage: UNK (SECOND APPLICATION)
     Route: 065
     Dates: start: 20210527
  4. XOLAIR [Suspect]
     Active Substance: OMALIZUMAB
     Dosage: UNK (SECOND APPLICATION) (2 X 150 MG EACH)
     Route: 065
     Dates: end: 202107
  5. XOLAIR [Suspect]
     Active Substance: OMALIZUMAB
     Dosage: UNK (THIRD APPLICATION)
     Route: 065
     Dates: start: 202208
  6. XOLAIR [Suspect]
     Active Substance: OMALIZUMAB
     Dosage: UNK (FOURTH APPLICATION)
     Route: 065
  7. XOLAIR [Suspect]
     Active Substance: OMALIZUMAB
     Dosage: UNK (FIFTH APPLICATION)
     Route: 065
  8. XOLAIR [Suspect]
     Active Substance: OMALIZUMAB
     Dosage: 300 MG, EVERY 3 WEEKS
     Route: 065
     Dates: start: 2021, end: 2021
  9. XOLAIR [Suspect]
     Active Substance: OMALIZUMAB
     Dosage: 300 MG, EVERY 4 WEEKS
     Route: 065

REACTIONS (8)
  - Polyneuropathy [Unknown]
  - Tremor [Unknown]
  - Vibration syndrome [Unknown]
  - Pain [Unknown]
  - Swelling [Unknown]
  - Inappropriate schedule of product administration [Unknown]
  - Product use in unapproved indication [Unknown]
  - Drug ineffective [Unknown]

NARRATIVE: CASE EVENT DATE: 20210501
